FAERS Safety Report 5704856-1 (Version None)
Quarter: 2008Q2

REPORT INFORMATION
  Report Type: 
  Country: None (occurrence: None)
  Receive Date: 20080414
  Receipt Date: 20080403
  Transmission Date: 20081010
  Serious: Yes (Hospitalization)
  Sender: FDA-Public Use
  Company Number: US-AMGEN-QUU272842

PATIENT
  Sex: Female

DRUGS (2)
  1. ENBREL [Suspect]
     Indication: ANKYLOSING SPONDYLITIS
     Route: 058
     Dates: start: 20030101, end: 20051101
  2. METHOTREXATE [Concomitant]
     Dates: start: 20021101

REACTIONS (7)
  - ACUTE PULMONARY HISTOPLASMOSIS [None]
  - CHOLECYSTECTOMY [None]
  - DYSPNOEA [None]
  - HEPATIC ENZYME INCREASED [None]
  - HEPATOMEGALY [None]
  - PLEURITIC PAIN [None]
  - SPLENOMEGALY [None]
